FAERS Safety Report 15349537 (Version 1)
Quarter: 2018Q3

REPORT INFORMATION
  Report Type: Spontaneous
  Country: US (occurrence: US)
  Receive Date: 20180904
  Receipt Date: 20180904
  Transmission Date: 20181010
  Serious: Yes (Other)
  Sender: FDA-Public Use
  Company Number: US-PFIZER INC-2018349985

PATIENT
  Sex: Male

DRUGS (1)
  1. LYRICA CR [Suspect]
     Active Substance: PREGABALIN
     Indication: POST HERPETIC NEURALGIA
     Dosage: 247.5 MG, DAILY [3 X 82.5 MG DAILY]

REACTIONS (12)
  - Fall [Unknown]
  - Dysphagia [Unknown]
  - Intentional product misuse [Unknown]
  - Cognitive disorder [Unknown]
  - Ataxia [Unknown]
  - Somnolence [Unknown]
  - Dizziness [Unknown]
  - Product size issue [Unknown]
  - Withdrawal syndrome [Unknown]
  - Mental impairment [Unknown]
  - Weight increased [Unknown]
  - Feeling abnormal [Unknown]
